FAERS Safety Report 16861520 (Version 1)
Quarter: 2019Q3

REPORT INFORMATION
  Report Type: Spontaneous
  Country: US (occurrence: US)
  Receive Date: 20190927
  Receipt Date: 20190927
  Transmission Date: 20191005
  Serious: Yes (Other)
  Sender: FDA-Public Use
  Company Number: US-GILEAD-2019-0430572

PATIENT
  Sex: Female

DRUGS (2)
  1. CARVEDILOL. [Concomitant]
     Active Substance: CARVEDILOL
  2. RANEXA [Suspect]
     Active Substance: RANOLAZINE
     Indication: PRODUCT USED FOR UNKNOWN INDICATION
     Dosage: 500 MG, BID
     Route: 065

REACTIONS (6)
  - Cough [Not Recovered/Not Resolved]
  - Anaphylactic shock [Unknown]
  - Nasal oedema [Not Recovered/Not Resolved]
  - Hypersensitivity [Unknown]
  - Upper-airway cough syndrome [Not Recovered/Not Resolved]
  - Pharyngeal oedema [Not Recovered/Not Resolved]
